FAERS Safety Report 14998268 (Version 2)
Quarter: 2018Q3

REPORT INFORMATION
  Report Type: Spontaneous
  Country: JP (occurrence: JP)
  Receive Date: 20180611
  Receipt Date: 20180710
  Transmission Date: 20181010
  Serious: Yes (Hospitalization, Other)
  Sender: FDA-Public Use
  Company Number: JP-ALLERGAN-1830125US

PATIENT
  Age: 56 Year
  Sex: Female

DRUGS (1)
  1. MESALAZINE UNK [Suspect]
     Active Substance: MESALAMINE
     Indication: COLITIS ULCERATIVE
     Dosage: 2400 MG, QD
     Route: 065

REACTIONS (3)
  - Off label use [Unknown]
  - Hypersensitivity [Recovered/Resolved]
  - Colitis ulcerative [Recovering/Resolving]
